FAERS Safety Report 8613913 (Version 14)
Quarter: 2016Q1

REPORT INFORMATION
  Report Type: Report from Study
  Country: CA (occurrence: CA)
  Receive Date: 20120614
  Receipt Date: 20160323
  Transmission Date: 20160526
  Serious: Yes (Life-Threatening, Hospitalization, Other)
  Sender: FDA-Public Use
  Company Number: PHHY2009CA17712

PATIENT
  Age: 77 Year
  Sex: Male

DRUGS (2)
  1. SANDOSTATIN LAR DEPOT [Suspect]
     Active Substance: OCTREOTIDE ACETATE
     Dosage: 30 MG, QMO (EVERY 4 WEEKS)
     Route: 030
  2. SANDOSTATIN LAR DEPOT [Suspect]
     Active Substance: OCTREOTIDE ACETATE
     Indication: NEUROENDOCRINE TUMOUR
     Dosage: 20 MG, QMO (EVERY 4 WEEKS)
     Route: 030
     Dates: start: 20080507

REACTIONS (30)
  - Retinal vascular thrombosis [Unknown]
  - General physical health deterioration [Unknown]
  - Balance disorder [Recovered/Resolved with Sequelae]
  - Syringe issue [Unknown]
  - Cerebral haemorrhage [Recovered/Resolved with Sequelae]
  - Dyspnoea [Unknown]
  - Blindness transient [Unknown]
  - Underdose [Unknown]
  - Asthenia [Unknown]
  - Back pain [Unknown]
  - Needle issue [Unknown]
  - Body temperature decreased [Unknown]
  - Nasopharyngitis [Unknown]
  - Muscle atrophy [Unknown]
  - Memory impairment [Recovered/Resolved with Sequelae]
  - Seizure [Recovered/Resolved with Sequelae]
  - Blood pressure increased [Unknown]
  - Diarrhoea [Recovering/Resolving]
  - Heart rate decreased [Recovered/Resolved with Sequelae]
  - Injection site pain [Unknown]
  - Incorrect product storage [Unknown]
  - Confusional state [Recovered/Resolved with Sequelae]
  - Influenza [Recovered/Resolved with Sequelae]
  - Gastroenteritis [Unknown]
  - Dizziness [Unknown]
  - Blood pressure systolic increased [Unknown]
  - Vomiting [Recovering/Resolving]
  - Blood pressure diastolic decreased [Unknown]
  - Heart rate increased [Unknown]
  - Abdominal pain [Unknown]

NARRATIVE: CASE EVENT DATE: 20130118
